FAERS Safety Report 8059424-6 (Version None)
Quarter: 2012Q1

REPORT INFORMATION
  Report Type: 
  Country: None (occurrence: None)
  Receive Date: 20120113
  Receipt Date: 20120106
  Transmission Date: 20120608
  Serious: Yes (Hospitalization, Disabling, Other)
  Sender: FDA-Public Use
  Company Number: 2011SP035872

PATIENT
  Age: 42 Year
  Sex: Female
  Weight: 95.2554 kg

DRUGS (3)
  1. NUVARING [Suspect]
     Indication: MUSCLE SPASMS
     Dates: start: 20060729, end: 20080821
  2. NUVARING [Suspect]
     Indication: CONTRACEPTION
     Dates: start: 20060729, end: 20080821
  3. NUVARING [Suspect]
     Indication: MENORRHAGIA
     Dates: start: 20060729, end: 20080821

REACTIONS (28)
  - MIGRAINE [None]
  - ANXIETY [None]
  - INSOMNIA [None]
  - HEPATIC CYST [None]
  - EXOSTOSIS [None]
  - HYPERCHOLESTEROLAEMIA [None]
  - SINUS DISORDER [None]
  - BEREAVEMENT [None]
  - HERPES ZOSTER [None]
  - NERVE INJURY [None]
  - NEPHROLITHIASIS [None]
  - DIZZINESS [None]
  - NAUSEA [None]
  - RESPIRATORY TRACT INFECTION [None]
  - THROMBOSIS [None]
  - STRESS AT WORK [None]
  - COUGH [None]
  - EAR PAIN [None]
  - PARAESTHESIA [None]
  - HYPOAESTHESIA [None]
  - FOOT FRACTURE [None]
  - HYPERTENSION [None]
  - ARTHROPOD STING [None]
  - PERIPHERAL EMBOLISM [None]
  - CELLULITIS [None]
  - RHINITIS SEASONAL [None]
  - JOINT SWELLING [None]
  - DEPRESSION [None]
